FAERS Safety Report 5894944-1 (Version None)
Quarter: 2008Q3

REPORT INFORMATION
  Report Type: 
  Country: None (occurrence: None)
  Receive Date: 20080924
  Receipt Date: 20080917
  Transmission Date: 20090109
  Serious: Yes (Death, Other)
  Sender: FDA-Public Use
  Company Number: PHBS2008GB05763

PATIENT
  Age: 62 Year
  Sex: Male

DRUGS (4)
  1. CYCLOSPORINE [Suspect]
     Indication: BONE MARROW TRANSPLANT
  2. FLUDARABINE PHOSPHATE [Concomitant]
  3. MELPHALAN [Concomitant]
  4. CAMPATH [Concomitant]
     Dosage: 10 MG/DAY D-3, D-2, D-1

REACTIONS (9)
  - DYSPHAGIA [None]
  - DYSPNOEA [None]
  - EPSTEIN-BARR VIRUS ASSOCIATED LYMPHOPROLIFERATIVE DISORDER [None]
  - EPSTEIN-BARR VIRUS INFECTION [None]
  - HYPOXIA [None]
  - MASS [None]
  - OROPHARYNGEAL PAIN [None]
  - PYREXIA [None]
  - SINUS DISORDER [None]
